FAERS Safety Report 11070145 (Version 7)
Quarter: 2019Q1

REPORT INFORMATION
  Report Type: Spontaneous
  Country: US (occurrence: US)
  Receive Date: 20150427
  Receipt Date: 20190207
  Transmission Date: 20190417
  Serious: Yes (Death, Hospitalization, Other)
  Sender: FDA-Public Use
  Company Number: US-CELGENEUS-USA-2015044901

PATIENT
  Age: 59 Year
  Sex: Male
  Weight: 86.81 kg

DRUGS (16)
  1. POMALYST [Suspect]
     Active Substance: POMALIDOMIDE
     Dosage: 5 MILLIGRAM
     Route: 048
     Dates: start: 20140206, end: 20150409
  2. VANCOMYCIN [Concomitant]
     Active Substance: VANCOMYCIN
     Indication: DRUG LEVEL
     Dosage: 1000 MILLIGRAM
     Route: 041
     Dates: start: 20150425, end: 20150524
  3. DARUNAVIR [Concomitant]
     Active Substance: DARUNAVIR
     Indication: HIV INFECTION
     Dosage: 600 MILLIGRAM
     Route: 048
     Dates: start: 200905
  4. ABACAVIR. [Concomitant]
     Active Substance: ABACAVIR
     Indication: HIV INFECTION
     Dosage: 600 MILLIGRAM
     Route: 048
     Dates: start: 200905
  5. LAMIVUDINE. [Concomitant]
     Active Substance: LAMIVUDINE
     Indication: HIV INFECTION
     Dosage: 150 MILLIGRAM
     Route: 048
     Dates: start: 200905
  6. MICAFUNGIN. [Concomitant]
     Active Substance: MICAFUNGIN SODIUM
     Indication: PROPHYLAXIS
     Dosage: 150 MILLIGRAM
     Route: 041
     Dates: start: 20150524, end: 20150603
  7. MEROPENEM. [Concomitant]
     Active Substance: MEROPENEM
     Indication: FEBRILE NEUTROPENIA
     Dosage: 2000 MILLIGRAM
     Route: 041
     Dates: start: 20150506, end: 20150605
  8. REVLIMID [Suspect]
     Active Substance: LENALIDOMIDE
     Indication: PRIMARY EFFUSION LYMPHOMA
     Dosage: 25-10 MG
     Route: 048
     Dates: start: 201504, end: 201505
  9. POMALYST [Suspect]
     Active Substance: POMALIDOMIDE
     Indication: KAPOSI^S SARCOMA
     Dosage: 5 MILLIGRAM
     Route: 048
     Dates: start: 20130621, end: 201312
  10. RITONAVIR. [Concomitant]
     Active Substance: RITONAVIR
     Indication: HIV INFECTION
     Dosage: 200 MILLIGRAM
     Route: 048
     Dates: start: 200905
  11. DAPTOMYCIN. [Concomitant]
     Active Substance: DAPTOMYCIN
     Indication: CELLULITIS
     Dosage: 305 MILLIGRAM
     Route: 041
     Dates: start: 20150524, end: 20150524
  12. POMALYST [Suspect]
     Active Substance: POMALIDOMIDE
     Dosage: 4 MILLIGRAM
     Route: 048
     Dates: start: 201505, end: 20150609
  13. TRIUMEQ [Concomitant]
     Active Substance: ABACAVIR SULFATE\DOLUTEGRAVIR SODIUM\LAMIVUDINE
     Indication: HIV INFECTION
     Dosage: 1 TABLET
     Route: 048
     Dates: start: 20150410, end: 20150609
  14. LEVOFLOXACIN. [Concomitant]
     Active Substance: LEVOFLOXACIN
     Indication: INFECTION
     Dosage: 250 MILLIGRAM
     Route: 048
     Dates: start: 20150604, end: 20150611
  15. DEXAMETHASONE. [Concomitant]
     Active Substance: DEXAMETHASONE
     Indication: LYMPHOMA
     Dosage: 40 MILLIGRAM
     Route: 048
     Dates: start: 20150430, end: 20150604
  16. ASA [Concomitant]
     Active Substance: ASPIRIN
     Indication: THROMBOSIS PROPHYLAXIS
     Dosage: 81 MILLIGRAM
     Route: 048
     Dates: start: 20130621, end: 201506

REACTIONS (3)
  - Primary effusion lymphoma [Fatal]
  - Febrile neutropenia [Recovered/Resolved]
  - Cellulitis [Recovered/Resolved]

NARRATIVE: CASE EVENT DATE: 20150410
